FAERS Safety Report 4752335-0 (Version None)
Quarter: 2005Q3

REPORT INFORMATION
  Report Type: 
  Country: None (occurrence: None)
  Receive Date: 20050825
  Receipt Date: 20050812
  Transmission Date: 20060218
  Serious: Yes (Death, Life-Threatening, Hospitalization)
  Sender: FDA-Public Use
  Company Number: FR-GLAXOSMITHKLINE-B0390819A

PATIENT
  Age: 23 Year
  Sex: Male

DRUGS (2)
  1. LAMICTAL [Suspect]
     Indication: EPILEPSY
     Dosage: 200MG UNKNOWN
     Route: 048
     Dates: start: 20050628
  2. EPITOMAX [Suspect]
     Indication: EPILEPSY
     Dosage: 50MG UNKNOWN
     Route: 048
     Dates: start: 20050628

REACTIONS (10)
  - ANURIA [None]
  - BLOOD CREATINE INCREASED [None]
  - CARDIAC ARREST [None]
  - CLONUS [None]
  - DISSEMINATED INTRAVASCULAR COAGULATION [None]
  - HEPATOCELLULAR DAMAGE [None]
  - HYPOKALAEMIA [None]
  - METABOLIC ACIDOSIS [None]
  - RENAL FAILURE ACUTE [None]
  - STATUS EPILEPTICUS [None]
